FAERS Safety Report 9457718 (Version 1)
Quarter: 2013Q3

REPORT INFORMATION
  Report Type: Spontaneous
  Country: IT (occurrence: None)
  Receive Date: 20130812
  Receipt Date: 20130812
  Transmission Date: 20140515
  Serious: Yes (Hospitalization, Other)
  Sender: FDA-Public Use
  Company Number: AG-2012-0921

PATIENT
  Age: 88 Year
  Sex: Female

DRUGS (3)
  1. CHLORAMBUCIL [Suspect]
     Indication: CHRONIC LYMPHOCYTIC LEUKAEMIA
     Dosage: 1U PER DAY,ORAL
     Route: 048
     Dates: start: 20120401, end: 20120509
  2. LEVOFLOXACIN [Concomitant]
  3. GRANULOKINE [Concomitant]

REACTIONS (4)
  - Anaemia [None]
  - Thrombocytopenia [None]
  - Rectal haemorrhage [None]
  - Epistaxis [None]
